FAERS Safety Report 24088006 (Version 1)
Quarter: 2024Q3

REPORT INFORMATION
  Report Type: Spontaneous
  Country: FR (occurrence: FR)
  Receive Date: 20240715
  Receipt Date: 20240715
  Transmission Date: 20241017
  Serious: Yes (Hospitalization)
  Sender: TEVA
  Company Number: None

PATIENT
  Age: 68 Year
  Sex: Male
  Weight: 90.5 kg

DRUGS (9)
  1. RAMIPRIL [Suspect]
     Active Substance: RAMIPRIL
     Indication: Acute coronary syndrome
     Dosage: 2.5 MG/DAY
     Route: 048
     Dates: start: 202306
  2. PREGABALIN [Suspect]
     Active Substance: PREGABALIN
     Indication: Neuralgia
     Dosage: 150 MG 1-0-1
     Route: 048
     Dates: start: 202304
  3. ELIQUIS [Suspect]
     Active Substance: APIXABAN
     Indication: Portal vein thrombosis
     Dosage: 5 MG 1-0-1,
     Route: 048
     Dates: start: 202303
  4. JARDIANCE [Suspect]
     Active Substance: EMPAGLIFLOZIN
     Indication: Acute coronary syndrome
     Dosage: 10 MG/DAY,
     Route: 048
     Dates: start: 202306
  5. ALFUZOSIN [Suspect]
     Active Substance: ALFUZOSIN
     Indication: Benign prostatic hyperplasia
     Dosage: 10 MG LP EVERY EVENING, ALFUZOSIN (HYDROCHLORIDE)
     Route: 048
     Dates: start: 20230405
  6. KARDEGIC [Suspect]
     Active Substance: ASPIRIN DL-LYSINE
     Indication: Acute coronary syndrome
     Dosage: 75 MG/DAY,
     Route: 048
     Dates: start: 202306
  7. ATORVASTATIN [Suspect]
     Active Substance: ATORVASTATIN
     Indication: Acute coronary syndrome
     Dosage: 80 MG/DAY
     Route: 048
     Dates: start: 202306
  8. BISOPROLOL [Suspect]
     Active Substance: BISOPROLOL\BISOPROLOL FUMARATE
     Indication: Acute coronary syndrome
     Dosage: 1.25 MG/DAY. BISOPROLOL (ACID FUMARATE)
     Route: 048
     Dates: start: 202306
  9. EZETIMIBE [Suspect]
     Active Substance: EZETIMIBE
     Indication: Acute coronary syndrome
     Dosage: 10 MG/DAY
     Route: 048
     Dates: start: 202306

REACTIONS (1)
  - Lichenoid keratosis [Not Recovered/Not Resolved]

NARRATIVE: CASE EVENT DATE: 20240416
